FAERS Safety Report 5703071-5 (Version None)
Quarter: 2008Q2

REPORT INFORMATION
  Report Type: 
  Country: None (occurrence: None)
  Receive Date: 20080411
  Receipt Date: 20080325
  Transmission Date: 20081010
  Serious: Yes (Hospitalization, Other)
  Sender: FDA-Public Use
  Company Number: PHNU2007DE03588

PATIENT
  Age: 61 Year
  Sex: Female
  Weight: 60 kg

DRUGS (3)
  1. ZOMETA [Suspect]
     Indication: PLASMACYTOMA
     Dosage: 4 MG, QMO
     Route: 042
     Dates: start: 20070501, end: 20071009
  2. FENTANYL [Concomitant]
     Dosage: 100 UG/HR, UNK
  3. FUROSEMIDE [Concomitant]
     Indication: OEDEMA
     Dosage: 125 MG, PRN
     Route: 065

REACTIONS (6)
  - ASPARTATE AMINOTRANSFERASE INCREASED [None]
  - BLOOD CREATINE PHOSPHOKINASE INCREASED [None]
  - BLOOD CREATININE INCREASED [None]
  - BLOOD UREA INCREASED [None]
  - MYALGIA [None]
  - RHABDOMYOLYSIS [None]
